FAERS Safety Report 20074313 (Version 1)
Quarter: 2021Q4

REPORT INFORMATION
  Report Type: Spontaneous
  Country: FR (occurrence: None)
  Receive Date: 20211116
  Receipt Date: 20211116
  Transmission Date: 20220303
  Serious: Yes (Hospitalization)
  Sender: FDA-Public Use
  Company Number: None

PATIENT
  Age: 51 Year
  Sex: Male

DRUGS (8)
  1. CASPOFUNGIN [Suspect]
     Active Substance: CASPOFUNGIN
     Indication: Infection
     Route: 042
     Dates: start: 20210828, end: 20210928
  2. CEFOTAXIME [Suspect]
     Active Substance: CEFOTAXIME SODIUM
     Indication: Infection
     Route: 042
     Dates: start: 20210828
  3. AMIKACIN [Suspect]
     Active Substance: AMIKACIN
     Indication: Infection
     Route: 042
     Dates: start: 20210831
  4. CILASTATIN SODIUM\IMIPENEM [Suspect]
     Active Substance: CILASTATIN SODIUM\IMIPENEM
     Indication: Infection
     Route: 042
     Dates: start: 20210925, end: 20211001
  5. METRONIDAZOLE [Suspect]
     Active Substance: METRONIDAZOLE
     Indication: Infection
     Route: 042
     Dates: start: 20210828, end: 20210928
  6. TEICOPLANIN [Suspect]
     Active Substance: TEICOPLANIN
     Indication: Infection
     Route: 042
     Dates: start: 20210912, end: 20211001
  7. CEFTAZIDIME [Suspect]
     Active Substance: CEFTAZIDIME
     Indication: Infection
     Route: 042
     Dates: start: 20210912
  8. PIPERACILLIN SODIUM\TAZOBACTAM SODIUM [Suspect]
     Active Substance: PIPERACILLIN SODIUM\TAZOBACTAM SODIUM
     Indication: Infection
     Route: 042
     Dates: start: 20210831

REACTIONS (1)
  - Haemophagocytic lymphohistiocytosis [Recovered/Resolved]

NARRATIVE: CASE EVENT DATE: 20210925
